FAERS Safety Report 9886022 (Version 1)
Quarter: 2014Q1

REPORT INFORMATION
  Report Type: Spontaneous
  Country: US (occurrence: None)
  Receive Date: 20140207
  Receipt Date: 20140207
  Transmission Date: 20141002
  Serious: No
  Sender: FDA-Public Use
  Company Number: None

PATIENT
  Sex: Female

DRUGS (1)
  1. FORTEO 600 MCG/2.4 ML LILLY [Suspect]
     Dosage: UNDER THE SKIN, EXPIRES 28 DAYS AFTER OPENING.
     Dates: start: 20130708

REACTIONS (2)
  - Blood calcium increased [None]
  - Renal disorder [None]
